FAERS Safety Report 21388757 (Version 2)
Quarter: 2023Q1

REPORT INFORMATION
  Report Type: Report from Study
  Country: CA (occurrence: CA)
  Receive Date: 20220928
  Receipt Date: 20230314
  Transmission Date: 20230418
  Serious: Yes (Hospitalization, Other)
  Sender: FDA-Public Use
  Company Number: CA-ABBVIE-4132279

PATIENT
  Age: 65 Year
  Sex: Male

DRUGS (2)
  1. LUPRON [Suspect]
     Active Substance: LEUPROLIDE ACETATE
     Indication: Prostate cancer
     Route: 030
     Dates: start: 20220628
  2. LUPRON [Suspect]
     Active Substance: LEUPROLIDE ACETATE
     Route: 030

REACTIONS (14)
  - Coronary arterial stent insertion [Not Recovered/Not Resolved]
  - Device occlusion [Recovered/Resolved]
  - Gallbladder disorder [Recovering/Resolving]
  - Thrombosis in device [Recovered/Resolved]
  - Weight decreased [Unknown]
  - Dyspepsia [Not Recovered/Not Resolved]
  - Gallbladder disorder [Unknown]
  - Pain [Not Recovered/Not Resolved]
  - Unevaluable event [Unknown]
  - Cholecystitis [Unknown]
  - Catheter site infection [Unknown]
  - Bladder catheterisation [Unknown]
  - Acute kidney injury [Not Recovered/Not Resolved]
  - Sepsis [Not Recovered/Not Resolved]

NARRATIVE: CASE EVENT DATE: 20220928
